FAERS Safety Report 11864909 (Version 1)
Quarter: 2015Q4

REPORT INFORMATION
  Report Type: Spontaneous
  Country: GB (occurrence: GB)
  Receive Date: 20151223
  Receipt Date: 20151223
  Transmission Date: 20160305
  Serious: Yes (Life-Threatening)
  Sender: FDA-Public Use
  Company Number: GB-ASTRAZENECA-2015SF27181

PATIENT
  Age: 59 Year
  Sex: Female
  Weight: 61.3 kg

DRUGS (8)
  1. LINAGLIPTIN [Concomitant]
     Active Substance: LINAGLIPTIN
  2. PIZOTIFEN [Concomitant]
     Active Substance: PIZOTYLINE
  3. DAPAGLIFLOZIN [Suspect]
     Active Substance: DAPAGLIFLOZIN
     Indication: DIABETES MELLITUS INADEQUATE CONTROL
     Route: 048
     Dates: start: 20150224, end: 20151201
  4. CLONIDINE. [Concomitant]
     Active Substance: CLONIDINE
  5. SIMVASTATIN. [Concomitant]
     Active Substance: SIMVASTATIN
  6. CETIRIZINE [Concomitant]
     Active Substance: CETIRIZINE HYDROCHLORIDE
  7. METFORMIN [Concomitant]
     Active Substance: METFORMIN HYDROCHLORIDE
  8. QUETIAPINE [Concomitant]
     Active Substance: QUETIAPINE

REACTIONS (3)
  - Malaise [Recovered/Resolved]
  - Vomiting [Recovered/Resolved]
  - Diabetic ketoacidosis [Recovered/Resolved]

NARRATIVE: CASE EVENT DATE: 20151201
